FAERS Safety Report 4801669-X (Version None)
Quarter: 2005Q4

REPORT INFORMATION
  Report Type: 
  Country: None (occurrence: None)
  Receive Date: 20051013
  Receipt Date: 20051013
  Transmission Date: 20060501
  Serious: Yes (Other)
  Sender: FDA-Public Use
  Company Number: None

PATIENT

DRUGS (8)
  1. ZOCOR [Suspect]
     Indication: CEREBROVASCULAR ACCIDENT
     Dosage: ONE PO QD
     Route: 048
     Dates: start: 20050901
  2. ZOCOR [Suspect]
     Indication: HYPERLIPIDAEMIA
     Dosage: ONE PO QD
     Route: 048
     Dates: start: 20050901
  3. ZOCOR [Suspect]
     Indication: CEREBROVASCULAR ACCIDENT
     Dosage: ONE PO QD
     Route: 048
     Dates: start: 20051210
  4. ZOCOR [Suspect]
     Indication: HYPERLIPIDAEMIA
     Dosage: ONE PO QD
     Route: 048
     Dates: start: 20051210
  5. NEXIUM [Concomitant]
  6. TEGRETOL [Concomitant]
  7. LI CO3 [Concomitant]
  8. LORATADINE [Concomitant]

REACTIONS (2)
  - NAUSEA [None]
  - VOMITING [None]
